FAERS Safety Report 21054676 (Version 1)
Quarter: 2022Q3

REPORT INFORMATION
  Report Type: Report from Study
  Country: DE (occurrence: DE)
  Receive Date: 20220707
  Receipt Date: 20220707
  Transmission Date: 20221026
  Serious: Yes (Hospitalization)
  Sender: FDA-Public Use
  Company Number: DE-ABBVIE-22K-062-4455394-00

PATIENT
  Age: 68 Year
  Sex: Female
  Weight: 80 kg

DRUGS (3)
  1. HUMIRA [Suspect]
     Active Substance: ADALIMUMAB
     Indication: Psoriatic arthropathy
     Route: 058
     Dates: start: 20180228, end: 20180713
  2. IXEKIZUMAB [Concomitant]
     Active Substance: IXEKIZUMAB
     Indication: Psoriatic arthropathy
     Route: 058
     Dates: start: 20180723
  3. DOXEPIN [Concomitant]
     Active Substance: DOXEPIN
     Indication: Product used for unknown indication

REACTIONS (16)
  - Circulatory collapse [Recovered/Resolved]
  - Syncope [Recovered/Resolved]
  - Carotid artery stent insertion [Unknown]
  - Adrenomegaly [Unknown]
  - Heart rate abnormal [Unknown]
  - Hemiparesis [Unknown]
  - Fibrin D dimer increased [Unknown]
  - Hyperhidrosis [Unknown]
  - Polyneuropathy [Unknown]
  - Hepatic steatosis [Unknown]
  - Anxiety disorder [Unknown]
  - Dyspnoea [Unknown]
  - Therapeutic product effect incomplete [Unknown]
  - Pain in extremity [Unknown]
  - Back pain [Unknown]
  - Unevaluable event [Unknown]

NARRATIVE: CASE EVENT DATE: 20180901
